FAERS Safety Report 13042878 (Version 1)
Quarter: 2016Q4

REPORT INFORMATION
  Report Type: Spontaneous
  Country: US (occurrence: US)
  Receive Date: 20161219
  Receipt Date: 20161219
  Transmission Date: 20170207
  Serious: No
  Sender: FDA-Public Use
  Company Number: US-JAZZ-2016-US-020003

PATIENT
  Sex: Female

DRUGS (21)
  1. NORCO [Concomitant]
     Active Substance: ACETAMINOPHEN\HYDROCODONE BITARTRATE
  2. XYREM [Suspect]
     Active Substance: SODIUM OXYBATE
     Dosage: 4 G, SECOND DOSE
     Route: 048
     Dates: start: 200811
  3. GLUCOSAMINE SULFAT [Concomitant]
  4. METHOCARBAMOL. [Concomitant]
     Active Substance: METHOCARBAMOL
  5. XYREM [Suspect]
     Active Substance: SODIUM OXYBATE
     Dosage: 5 G, FIRST DOSE
     Route: 048
     Dates: start: 200811
  6. FISH OIL [Concomitant]
     Active Substance: FISH OIL
  7. CLONAZEPAM. [Concomitant]
     Active Substance: CLONAZEPAM
  8. CYANOCOBALAMIN. [Concomitant]
     Active Substance: CYANOCOBALAMIN
  9. L-GLUTAMINE                        /00503401/ [Concomitant]
     Active Substance: GLUTAMINE
  10. VICODIN [Concomitant]
     Active Substance: ACETAMINOPHEN\HYDROCODONE BITARTRATE
  11. XYREM [Suspect]
     Active Substance: SODIUM OXYBATE
     Indication: SLEEP DISORDER
     Dosage: 3 G, BID
     Route: 048
     Dates: start: 200709, end: 2007
  12. MAGNESIUM GLUCONATE [Concomitant]
     Active Substance: MAGNESIUM GLUCONATE
  13. PREDNISONE. [Concomitant]
     Active Substance: PREDNISONE
  14. AMBIEN [Concomitant]
     Active Substance: ZOLPIDEM TARTRATE
  15. LYRICA [Concomitant]
     Active Substance: PREGABALIN
  16. VITAMIN C [Concomitant]
     Active Substance: ASCORBIC ACID
  17. VITAMIN E                          /00110501/ [Concomitant]
     Active Substance: TOCOPHEROL
  18. METHYLCOBALAMIN. [Concomitant]
     Active Substance: METHYLCOBALAMIN
  19. VITAMINS NOS [Concomitant]
     Active Substance: VITAMINS
  20. XYREM [Suspect]
     Active Substance: SODIUM OXYBATE
     Dosage: 4 G, BID
     Route: 048
     Dates: start: 200710, end: 2008
  21. SKELAXIN [Concomitant]
     Active Substance: METAXALONE

REACTIONS (4)
  - Insomnia [Unknown]
  - Ligament disorder [Unknown]
  - Malaise [Unknown]
  - Joint swelling [Unknown]
